FAERS Safety Report 7338959-5 (Version None)
Quarter: 2011Q1

REPORT INFORMATION
  Report Type: 
  Country: None (occurrence: None)
  Receive Date: 20110308
  Receipt Date: 20110223
  Transmission Date: 20110831
  Serious: Yes (Other)
  Sender: FDA-Public Use
  Company Number: CN-ELI_LILLY_AND_COMPANY-CN201101003793

PATIENT
  Age: 22 Year
  Sex: Female

DRUGS (2)
  1. ZYPREXA [Suspect]
     Indication: MENTAL RETARDATION
     Dosage: 5 MG, DAILY (1/D)
     Route: 048
  2. VALPROATE SODIUM [Concomitant]
     Dosage: 500 MG, DAILY (1/D)
     Route: 048

REACTIONS (4)
  - WEIGHT INCREASED [None]
  - OFF LABEL USE [None]
  - HYDROTHORAX [None]
  - PLEURAL EFFUSION [None]
